FAERS Safety Report 23254680 (Version 2)
Quarter: 2024Q1

REPORT INFORMATION
  Report Type: Spontaneous
  Country: US (occurrence: US)
  Receive Date: 20231203
  Receipt Date: 20240302
  Transmission Date: 20240410
  Serious: Yes (Other)
  Sender: FDA-Public Use
  Company Number: US-MLMSERVICE-20231120-4665663-3

PATIENT
  Age: 1 Decade
  Sex: Female

DRUGS (9)
  1. PREDNISONE [Suspect]
     Active Substance: PREDNISONE
     Indication: Type III immune complex mediated reaction
     Dosage: 100 MG/M2, ONCE A DAY
     Route: 065
  2. RANITIDINE [Concomitant]
     Active Substance: RANITIDINE
     Indication: Type III immune complex mediated reaction
     Dosage: 150 MILLIGRAM, TWO TIMES A DAY
     Route: 065
  3. CETIRIZINE [Concomitant]
     Active Substance: CETIRIZINE HYDROCHLORIDE
     Indication: Type III immune complex mediated reaction
     Dosage: 10 MILLIGRAM, TWO TIMES A DAY
     Route: 065
  4. INSULIN NOS [Concomitant]
     Active Substance: INSULIN NOS
     Indication: Type 1 diabetes mellitus
     Dosage: UNK
     Route: 065
  5. INSULIN DETEMIR [Concomitant]
     Active Substance: INSULIN DETEMIR
     Indication: Type 1 diabetes mellitus
     Dosage: UNK
     Route: 065
  6. INSULIN LISPRO [Concomitant]
     Active Substance: INSULIN LISPRO
     Indication: Type 1 diabetes mellitus
     Dosage: UNK
     Route: 065
  7. TACROLIMUS [Concomitant]
     Active Substance: TACROLIMUS
     Indication: Type III immune complex mediated reaction
     Dosage: UNK
     Route: 065
  8. MONTELUKAST [Concomitant]
     Active Substance: MONTELUKAST SODIUM
     Indication: Type III immune complex mediated reaction
     Dosage: UNK
     Route: 065
  9. NPH INSULIN [Concomitant]
     Active Substance: INSULIN BEEF
     Indication: Type 1 diabetes mellitus
     Dosage: UNK
     Route: 065

REACTIONS (1)
  - Hyperglycaemia [Unknown]
